FAERS Safety Report 14776773 (Version 3)
Quarter: 2018Q4

REPORT INFORMATION
  Report Type: Spontaneous
  Country: FR (occurrence: FR)
  Receive Date: 20180419
  Receipt Date: 20181102
  Transmission Date: 20190204
  Serious: Yes (Hospitalization, Other)
  Sender: FDA-Public Use
  Company Number: FR-BIOGEN-2018BI00557934

PATIENT
  Age: 10 Year
  Sex: Male

DRUGS (5)
  1. SPINRAZA [Suspect]
     Active Substance: NUSINERSEN
     Dosage: TITRATION DOSE (DAY 0, DAY 15, DAY 30, DAY 60); DAY 17
     Route: 037
     Dates: start: 20180219
  2. SPINRAZA [Suspect]
     Active Substance: NUSINERSEN
     Indication: SPINAL MUSCULAR ATROPHY
     Dosage: TITRATION DOSE (DAY 0, DAY 15, DAY 30, DAY 60); DAY 0
     Route: 037
     Dates: start: 20180202
  3. SPINRAZA [Suspect]
     Active Substance: NUSINERSEN
     Dosage: TITRATION DOSE (DAY 0, DAY 15, DAY 30, DAY 60); DAY 87
     Route: 037
     Dates: start: 20180530
  4. SPINRAZA [Suspect]
     Active Substance: NUSINERSEN
     Dosage: TITRATION DOSE (DAY 0, DAY 15, DAY 30, DAY 60); DAY 38
     Route: 037
     Dates: start: 20180312
  5. SPINRAZA [Suspect]
     Active Substance: NUSINERSEN
     Dosage: TITRATION DOSE (DAY 0, DAY 15, DAY 30, DAY 60); AFTER 4 MONTHS
     Route: 037
     Dates: start: 20180920

REACTIONS (9)
  - Finger deformity [Unknown]
  - Fall [Recovered/Resolved]
  - Pelvic deformity [Unknown]
  - Femur fracture [Not Recovered/Not Resolved]
  - Scoliosis [Unknown]
  - Foot deformity [Unknown]
  - Hip deformity [Unknown]
  - Quadriplegia [Unknown]
  - Knee deformity [Unknown]

NARRATIVE: CASE EVENT DATE: 20180413
